FAERS Safety Report 5242754-0 (Version None)
Quarter: 2007Q1

REPORT INFORMATION
  Report Type: 
  Country: None (occurrence: None)
  Receive Date: 20070221
  Receipt Date: 20070214
  Transmission Date: 20070707
  Serious: Yes (Death)
  Sender: FDA-Public Use
  Company Number: FR-JNJFOC-20070203446

PATIENT
  Age: 55 Year
  Sex: Female

DRUGS (6)
  1. RISPERDAL [Suspect]
     Indication: SCHIZOPHRENIA
     Route: 048
  2. TERCIAN [Suspect]
     Indication: SCHIZOPHRENIA
     Route: 048
  3. IMOVANE [Concomitant]
     Route: 065
  4. LEPTICUR [Concomitant]
     Route: 065
  5. SERESTA [Concomitant]
     Route: 065
  6. PAROXETINE HCL [Concomitant]
     Route: 065

REACTIONS (1)
  - DYSPHAGIA [None]
